FAERS Safety Report 8525483 (Version 2)
Quarter: 2012Q4

REPORT INFORMATION
  Report Type: Report from Study
  Country: CN (occurrence: CN)
  Receive Date: 20120423
  Receipt Date: 20121108
  Transmission Date: 20130627
  Serious: Yes (Death)
  Sender: FDA-Public Use
  Company Number: PHHO2012CN006042

PATIENT
  Age: 72 Year
  Sex: Male

DRUGS (1)
  1. ALISKIREN [Suspect]
     Indication: CARDIOVASCULAR DISORDER
     Dosage: 300 mg, UNK
     Route: 048
     Dates: start: 20090331

REACTIONS (1)
  - Death [Fatal]
